FAERS Safety Report 19656994 (Version 1)
Quarter: 2021Q3

REPORT INFORMATION
  Report Type: Spontaneous
  Country: US (occurrence: US)
  Receive Date: 20210804
  Receipt Date: 20210804
  Transmission Date: 20211014
  Serious: Yes (Hospitalization)
  Sender: FDA-Public Use
  Company Number: None

PATIENT
  Age: 62 Year
  Sex: Female

DRUGS (7)
  1. GLIPIZIDE. [Concomitant]
     Active Substance: GLIPIZIDE
     Dates: start: 20210407
  2. EZETIMIBE. [Concomitant]
     Active Substance: EZETIMIBE
     Dates: start: 20210427
  3. ESCITALOPRAM [Concomitant]
     Active Substance: ESCITALOPRAM OXALATE
     Dates: start: 20210415
  4. RALOXIFENE. [Concomitant]
     Active Substance: RALOXIFENE
     Dates: start: 20210727
  5. METFORMIN [Concomitant]
     Active Substance: METFORMIN HYDROCHLORIDE
     Dates: start: 20210711
  6. VITAMIN D [Concomitant]
     Active Substance: VITAMIN D NOS
     Dates: start: 20210729
  7. GLATIRAMER SYRINGE [Suspect]
     Active Substance: GLATIRAMER
     Indication: MULTIPLE SCLEROSIS
     Dosage: ?          OTHER FREQUENCY:MON WED FRI;?
     Route: 058
     Dates: start: 20201024

REACTIONS (2)
  - Therapy interrupted [None]
  - Surgery [None]

NARRATIVE: CASE EVENT DATE: 20210628
